FAERS Safety Report 25626646 (Version 3)
Quarter: 2025Q3

REPORT INFORMATION
  Report Type: Spontaneous
  Country: US (occurrence: US)
  Receive Date: 20250731
  Receipt Date: 20250912
  Transmission Date: 20251021
  Serious: Yes (Other)
  Sender: SUNOVION
  Company Number: US-SMPA-2025SPA009235AA

PATIENT
  Age: 67 Year
  Sex: Male

DRUGS (6)
  1. ORGOVYX [Suspect]
     Active Substance: RELUGOLIX
     Indication: Prostate cancer
     Route: 048
  2. ORGOVYX [Suspect]
     Active Substance: RELUGOLIX
     Route: 048
  3. ATORVASTATIN [Concomitant]
     Active Substance: ATORVASTATIN
  4. LISINOPRIL AND HYDROCHLOROTHIAZIDE [Concomitant]
     Active Substance: HYDROCHLOROTHIAZIDE\LISINOPRIL
  5. SILDENAFIL [Concomitant]
     Active Substance: SILDENAFIL
  6. XTANDI [Concomitant]
     Active Substance: ENZALUTAMIDE

REACTIONS (10)
  - Metastasis [Unknown]
  - Malaise [Unknown]
  - Dizziness [Unknown]
  - Night sweats [Unknown]
  - Depression [Unknown]
  - Fatigue [Unknown]
  - Arthralgia [Unknown]
  - Hot flush [Unknown]
  - Weight increased [Unknown]
  - Myalgia [Unknown]

NARRATIVE: CASE EVENT DATE: 20250101
